FAERS Safety Report 5493142-3 (Version None)
Quarter: 2007Q4

REPORT INFORMATION
  Report Type: 
  Country: None (occurrence: None)
  Receive Date: 20071019
  Receipt Date: 20071016
  Transmission Date: 20080405
  Serious: Yes (Death, Hospitalization)
  Sender: FDA-Public Use
  Company Number: 2007-03437

PATIENT
  Age: 65 Year

DRUGS (4)
  1. VELCADE [Suspect]
     Indication: MULTIPLE MYELOMA
  2. AUGMENTIN '125' [Concomitant]
  3. GENTAMICIN [Concomitant]
  4. INOTROPICA [Concomitant]

REACTIONS (4)
  - COMA [None]
  - ENCEPHALITIS HERPES [None]
  - MULTI-ORGAN FAILURE [None]
  - PNEUMONIA [None]
